FAERS Safety Report 21006525 (Version 8)
Quarter: 2025Q3

REPORT INFORMATION
  Report Type: Report from Study
  Country: CA (occurrence: CA)
  Receive Date: 20220624
  Receipt Date: 20250821
  Transmission Date: 20251021
  Serious: Yes (Hospitalization, Other)
  Sender: TAKEDA
  Company Number: CA-TAKEDA-2022TUS041525

PATIENT
  Age: 74 Year
  Sex: Female

DRUGS (20)
  1. VEDOLIZUMAB [Suspect]
     Active Substance: VEDOLIZUMAB
     Indication: Crohn^s disease
  2. VEDOLIZUMAB [Suspect]
     Active Substance: VEDOLIZUMAB
  3. VEDOLIZUMAB [Suspect]
     Active Substance: VEDOLIZUMAB
  4. VEDOLIZUMAB [Suspect]
     Active Substance: VEDOLIZUMAB
  5. VEDOLIZUMAB [Suspect]
     Active Substance: VEDOLIZUMAB
  6. VEDOLIZUMAB [Suspect]
     Active Substance: VEDOLIZUMAB
  7. VEDOLIZUMAB [Suspect]
     Active Substance: VEDOLIZUMAB
  8. AZATHIOPRINE [Concomitant]
     Active Substance: AZATHIOPRINE
  9. CRESTOR [Concomitant]
     Active Substance: ROSUVASTATIN CALCIUM
  10. ELIQUIS [Concomitant]
     Active Substance: APIXABAN
  11. METFORMIN [Concomitant]
     Active Substance: METFORMIN HYDROCHLORIDE
  12. VITAMIN D [Concomitant]
     Active Substance: VITAMIN D NOS
  13. BISOPROLOL [Concomitant]
     Active Substance: BISOPROLOL
  14. TELMISARTAN [Concomitant]
     Active Substance: TELMISARTAN
  15. INSULIN NOS [Concomitant]
     Active Substance: INSULIN NOS
  16. ACETAMINOPHEN\TRAMADOL [Concomitant]
     Active Substance: ACETAMINOPHEN\TRAMADOL
  17. ATIVAN [Concomitant]
     Active Substance: LORAZEPAM
  18. HUMALOG [Concomitant]
     Active Substance: INSULIN LISPRO
  19. IMURAN [Concomitant]
     Active Substance: AZATHIOPRINE
  20. TRESIBA [Concomitant]
     Active Substance: INSULIN DEGLUDEC

REACTIONS (8)
  - Rectal haemorrhage [Unknown]
  - Arthropathy [Recovering/Resolving]
  - Anal cyst [Unknown]
  - Proctalgia [Unknown]
  - Post procedural inflammation [Unknown]
  - Myalgia [Unknown]
  - Flatulence [Unknown]
  - Haemorrhoids [Unknown]

NARRATIVE: CASE EVENT DATE: 20220618
